FAERS Safety Report 19547621 (Version 1)
Quarter: 2021Q3

REPORT INFORMATION
  Report Type: Spontaneous
  Country: US (occurrence: US)
  Receive Date: 20210714
  Receipt Date: 20210714
  Transmission Date: 20211014
  Serious: Yes (Hospitalization)
  Sender: FDA-Public Use
  Company Number: None

PATIENT
  Age: 56 Year
  Sex: Female
  Weight: 135 kg

DRUGS (9)
  1. ZITHROMAX Z?PAK 250 MG PO [Concomitant]
     Dates: start: 20210709, end: 20210713
  2. BROMPHENARAMINE/DEXTROMETHORPHAN/PSEUDOEPHEDRINE 2MG?10MG?30MG/5ML SYR [Concomitant]
     Dates: start: 20210709, end: 20210713
  3. SOLU?MEDROL 125 MG IVPUSH [Concomitant]
     Dates: start: 20210709, end: 20210709
  4. PHENERGAN 25 MG IVPB [Concomitant]
     Dates: start: 20210709, end: 20210709
  5. DUONEB [Concomitant]
     Active Substance: ALBUTEROL SULFATE\IPRATROPIUM BROMIDE
     Dates: start: 20210709, end: 20210709
  6. TESSALON PERLES 100 MG PO [Concomitant]
     Dates: start: 20210709, end: 20210709
  7. PEPCID 20 MG IVPB [Concomitant]
     Dates: start: 20210709, end: 20210709
  8. DEXAMETHASONE 6MG PO Q DAY [Concomitant]
     Dates: start: 20210709, end: 20210713
  9. REGEN?COV [Suspect]
     Active Substance: CASIRIVIMAB\IMDEVIMAB
     Indication: COVID-19
     Dosage: ?          OTHER FREQUENCY:ONCE;?
     Route: 041
     Dates: start: 20210709, end: 20210709

REACTIONS (1)
  - Hospitalisation [None]

NARRATIVE: CASE EVENT DATE: 20210713
